FAERS Safety Report 5221878-8 (Version None)
Quarter: 2007Q1

REPORT INFORMATION
  Report Type: 
  Country: None (occurrence: None)
  Receive Date: 20070126
  Receipt Date: 20070126
  Transmission Date: 20070707
  Serious: Yes (Hospitalization)
  Sender: FDA-Public Use
  Company Number: None

PATIENT
  Age: 68 Year
  Sex: Male
  Weight: 79.8 kg

DRUGS (14)
  1. AVANDIA [Suspect]
     Dosage: 4MG QD BY MOUTH
     Route: 048
     Dates: start: 20060907, end: 20060920
  2. ASPIRIN [Concomitant]
  3. RISPERDAL [Concomitant]
  4. VITAMIN B COMPLEX CAP [Concomitant]
  5. HEPARIN [Concomitant]
  6. NOVOLOG [Concomitant]
  7. NICOTINE [Concomitant]
  8. IPRATROPIUM BROMIDE [Concomitant]
  9. TOPROL-XL [Concomitant]
  10. FLUTICASONE/SALMETEROL [Concomitant]
  11. FUROSEMIDE [Concomitant]
  12. FERROUS SULFATE TAB [Concomitant]
  13. CLOPIDOGREL BISULFATE [Concomitant]
  14. ENALAPRIL MALEATE [Concomitant]

REACTIONS (1)
  - JAUNDICE [None]
